FAERS Safety Report 23161801 (Version 1)
Quarter: 2023Q4

REPORT INFORMATION
  Report Type: Spontaneous
  Country: ES (occurrence: ES)
  Receive Date: 20231108
  Receipt Date: 20231108
  Transmission Date: 20240110
  Serious: Yes (Other)
  Sender: FDA-Public Use
  Company Number: ES-JNJFOC-20231108308

PATIENT

DRUGS (1)
  1. IMBRUVICA [Suspect]
     Active Substance: IBRUTINIB
     Indication: Chronic lymphocytic leukaemia
     Route: 048

REACTIONS (14)
  - Cardiotoxicity [Unknown]
  - Hypertension [Unknown]
  - Haemorrhagic diathesis [Unknown]
  - Infection [Unknown]
  - Gastrointestinal toxicity [Unknown]
  - Thrombosis [Unknown]
  - Gastrointestinal haemorrhage [Unknown]
  - Haemorrhage intracranial [Unknown]
  - Drug intolerance [Unknown]
  - Cytopenia [Unknown]
  - Renal impairment [Unknown]
  - Hypogammaglobulinaemia [Unknown]
  - Hepatotoxicity [Unknown]
  - Arthrotoxicity [Unknown]
